FAERS Safety Report 5732214-2 (Version None)
Quarter: 2008Q2

REPORT INFORMATION
  Report Type: 
  Country: None (occurrence: None)
  Receive Date: 20080508
  Receipt Date: 20080415
  Transmission Date: 20081010
  Serious: No
  Sender: FDA-Public Use
  Company Number: US-BOEHRINGER INGELHEIM GMBH, GERMANY-2008-BP-04010BP

PATIENT
  Sex: Female

DRUGS (6)
  1. SPIRIVA [Suspect]
     Indication: CHRONIC OBSTRUCTIVE PULMONARY DISEASE
     Route: 055
     Dates: start: 20070101
  2. PROTONIX [Concomitant]
     Indication: GASTROOESOPHAGEAL REFLUX DISEASE
  3. PAXIL [Concomitant]
  4. ALBUTEROL [Concomitant]
     Indication: WHEEZING
  5. ASPIRIN [Concomitant]
  6. DARVOCET [Concomitant]
     Indication: ARTHRITIS

REACTIONS (1)
  - WHEEZING [None]
